FAERS Safety Report 19532389 (Version 1)
Quarter: 2021Q3

REPORT INFORMATION
  Report Type: Spontaneous
  Country: US (occurrence: US)
  Receive Date: 20210713
  Receipt Date: 20210713
  Transmission Date: 20211014
  Serious: No
  Sender: FDA-Public Use
  Company Number: US-TAKEDA-2021TUS041063

PATIENT
  Sex: Female
  Weight: 53 kg

DRUGS (2)
  1. REVLIMID [Suspect]
     Active Substance: LENALIDOMIDE
     Indication: PRODUCT USED FOR UNKNOWN INDICATION
     Dosage: UNK
     Route: 065
  2. VELCADE [Suspect]
     Active Substance: BORTEZOMIB
     Indication: PRODUCT USED FOR UNKNOWN INDICATION
     Dosage: 12.5 MILLIGRAM
     Route: 065
     Dates: start: 2020

REACTIONS (6)
  - Weight decreased [Unknown]
  - Diarrhoea [Unknown]
  - Arthralgia [Unknown]
  - Depressed mood [Unknown]
  - Contusion [Unknown]
  - Musculoskeletal discomfort [Unknown]
